FAERS Safety Report 23345665 (Version 1)
Quarter: 2023Q4

REPORT INFORMATION
  Report Type: Other
  Country: GB (occurrence: GB)
  Receive Date: 20231228
  Receipt Date: 20231228
  Transmission Date: 20240110
  Serious: Yes (Hospitalization, Other)
  Sender: FDA-Public Use
  Company Number: GB-009507513-1606GBR014399

PATIENT

DRUGS (12)
  1. DEXAMETHASONE [Suspect]
     Active Substance: DEXAMETHASONE
     Indication: Product used for unknown indication
     Dosage: UNK UNK
     Route: 048
  2. EMEND [Suspect]
     Active Substance: APREPITANT
     Indication: Product used for unknown indication
     Dosage: UNK UNK
     Route: 048
  3. ATROPINE [Suspect]
     Active Substance: ATROPINE\ATROPINE SULFATE
     Indication: Product used for unknown indication
     Dosage: UNK UNK
     Route: 048
  4. AVASTIN [Suspect]
     Active Substance: BEVACIZUMAB
     Indication: Product used for unknown indication
     Dosage: UNK UNK
     Route: 048
  5. IRINOTECAN [Suspect]
     Active Substance: IRINOTECAN
     Indication: Product used for unknown indication
     Dosage: UNK UNK
     Route: 048
  6. ONDANSETRON [Suspect]
     Active Substance: ONDANSETRON
     Indication: Product used for unknown indication
     Dosage: UNK UNK
     Route: 048
  7. TRAMADOL [Suspect]
     Active Substance: TRAMADOL\TRAMADOL HYDROCHLORIDE
     Indication: Product used for unknown indication
     Dosage: UNK UNK
     Route: 048
  8. FOLIC ACID\POTASSIUM IODIDE [Suspect]
     Active Substance: FOLIC ACID\POTASSIUM IODIDE
     Indication: Product used for unknown indication
     Dosage: UNK UNK
     Route: 065
  9. FLUOROURACIL [Suspect]
     Active Substance: FLUOROURACIL
     Indication: Product used for unknown indication
     Dosage: CYCLE 8 DAY 1
     Route: 065
  10. APREPITANT [Suspect]
     Active Substance: APREPITANT
     Indication: Product used for unknown indication
     Dosage: UNK
     Route: 065
  11. BEVACIZUMAB [Suspect]
     Active Substance: BEVACIZUMAB
     Indication: Product used for unknown indication
     Dosage: UNK
     Route: 065
  12. LEUCOVORIN CALCIUM [Suspect]
     Active Substance: LEUCOVORIN CALCIUM
     Indication: Product used for unknown indication
     Dosage: UNK
     Route: 065

REACTIONS (18)
  - Ill-defined disorder [Unknown]
  - Emotional disorder [Unknown]
  - Fatigue [Unknown]
  - Decreased appetite [Unknown]
  - Gait disturbance [Unknown]
  - Mouth ulceration [Unknown]
  - Hypertension [Unknown]
  - Gastrointestinal motility disorder [Unknown]
  - Alopecia [Unknown]
  - Pain [Unknown]
  - Arthropathy [Unknown]
  - Pyrexia [Unknown]
  - Muscular weakness [Unknown]
  - Stoma site pain [Unknown]
  - Diarrhoea [Unknown]
  - Oral pain [Unknown]
  - Rhinorrhoea [Unknown]
  - Change of bowel habit [Unknown]
